FAERS Safety Report 15516163 (Version 1)
Quarter: 2018Q4

REPORT INFORMATION
  Report Type: Spontaneous
  Country: US (occurrence: US)
  Receive Date: 20181017
  Receipt Date: 20181017
  Transmission Date: 20190205
  Serious: No
  Sender: FDA-Public Use
  Company Number: US-PFIZER INC-2018416321

PATIENT
  Age: 50 Year
  Sex: Female
  Weight: 54.43 kg

DRUGS (1)
  1. GABAPENTIN. [Suspect]
     Active Substance: GABAPENTIN
     Dosage: UNK (SHE TRIED IT TWICE)

REACTIONS (3)
  - Vertigo [Unknown]
  - Vomiting [Unknown]
  - Nausea [Unknown]
